FAERS Safety Report 4663466-8 (Version None)
Quarter: 2005Q2

REPORT INFORMATION
  Report Type: 
  Country: None (occurrence: None)
  Receive Date: 20050513
  Receipt Date: 20050103
  Transmission Date: 20051028
  Serious: Yes (Other)
  Sender: FDA-Public Use
  Company Number: 2005BI000140

PATIENT
  Age: 53 Year
  Sex: Female
  Weight: 76.2043 kg

DRUGS (2)
  1. AVONEX [Suspect]
     Indication: MULTIPLE SCLEROSIS
     Dosage: 30 UG;QW; IM
     Route: 030
     Dates: start: 20010403, end: 20030101
  2. AVONEX [Suspect]
     Indication: MULTIPLE SCLEROSIS
     Dosage: 30 UG; QW; IM
     Route: 030
     Dates: start: 20030101

REACTIONS (5)
  - ASTHENIA [None]
  - FALL [None]
  - HYPOAESTHESIA [None]
  - MYOCARDIAL INFARCTION [None]
  - SYNCOPE [None]
